FAERS Safety Report 10055652 (Version 1)
Quarter: 2014Q2

REPORT INFORMATION
  Report Type: Spontaneous
  Country: US (occurrence: None)
  Receive Date: 20140402
  Receipt Date: 20140402
  Transmission Date: 20141212
  Serious: Yes (Life-Threatening)
  Sender: FDA-Public Use
  Company Number: None

PATIENT
  Sex: Female
  Weight: 53.52 kg

DRUGS (1)
  1. WARFARIN [Suspect]

REACTIONS (2)
  - International normalised ratio fluctuation [None]
  - Therapeutic response changed [None]
